FAERS Safety Report 4807172-5 (Version None)
Quarter: 2005Q4

REPORT INFORMATION
  Report Type: 
  Country: None (occurrence: None)
  Receive Date: 20051024
  Receipt Date: 20051013
  Transmission Date: 20060501
  Serious: Yes (Hospitalization)
  Sender: FDA-Public Use
  Company Number: PHBS2005JP15310

PATIENT
  Age: 57 Year
  Sex: Female

DRUGS (5)
  1. BASEN [Suspect]
     Route: 048
     Dates: start: 20030101, end: 20051006
  2. AMARYL [Suspect]
     Route: 048
     Dates: start: 20030101, end: 20051006
  3. MELBIN [Suspect]
     Dates: start: 20030101, end: 20051006
  4. LIPITOR [Suspect]
     Route: 048
     Dates: start: 20030101, end: 20051006
  5. LAMISIL [Suspect]
     Indication: NAIL TINEA
     Route: 048
     Dates: start: 20050913, end: 20051006

REACTIONS (6)
  - ALANINE AMINOTRANSFERASE INCREASED [None]
  - ASPARTATE AMINOTRANSFERASE INCREASED [None]
  - CHILLS [None]
  - FEELING COLD [None]
  - GAMMA-GLUTAMYLTRANSFERASE INCREASED [None]
  - MALAISE [None]
